FAERS Safety Report 16831090 (Version 1)
Quarter: 2019Q3

REPORT INFORMATION
  Report Type: Spontaneous
  Country: FR (occurrence: FR)
  Receive Date: 20190920
  Receipt Date: 20190920
  Transmission Date: 20191005
  Serious: Yes (Hospitalization)
  Sender: FDA-Public Use
  Company Number: FR-TEVA-2019-FR-1109631

PATIENT
  Age: 17 Year
  Sex: Male
  Weight: 79 kg

DRUGS (5)
  1. RISPERDAL [Suspect]
     Active Substance: RISPERIDONE
     Indication: DELIRIUM
     Dosage: 2 MILLIGRAM PER DAY
     Route: 048
     Dates: start: 20190821, end: 20190829
  2. ROCEPHINE [Suspect]
     Active Substance: CEFTRIAXONE SODIUM
     Indication: PROPHYLAXIS
     Dosage: 2 GRAMS PER DAY
     Route: 042
  3. AMOXICILLINE [Suspect]
     Active Substance: AMOXICILLIN
     Indication: PROPHYLAXIS
     Route: 065
  4. TERCIAN 40 MG/ML, SOLUTION BUVABLE EN GOUTTES [Suspect]
     Active Substance: CYAMEMAZINE
     Indication: AGITATION
     Dosage: 50 MILLIGRAM PER DAY
     Route: 048
     Dates: start: 20190808, end: 20190829
  5. ACICLOVIR [Suspect]
     Active Substance: ACYCLOVIR
     Indication: PROPHYLAXIS
     Route: 065

REACTIONS (1)
  - Hepatocellular injury [Not Recovered/Not Resolved]

NARRATIVE: CASE EVENT DATE: 20190823
